FAERS Safety Report 16945038 (Version 1)
Quarter: 2019Q4

REPORT INFORMATION
  Report Type: Spontaneous
  Country: US (occurrence: US)
  Receive Date: 20191022
  Receipt Date: 20191022
  Transmission Date: 20200122
  Serious: No
  Sender: FDA-Public Use
  Company Number: US-GILEAD-2019-0433962

PATIENT
  Age: 58 Year
  Sex: Male

DRUGS (2)
  1. VEMLIDY [Suspect]
     Active Substance: TENOFOVIR ALAFENAMIDE FUMARATE
     Dosage: 2 DOSAGE FORM, QD
     Route: 065
  2. VEMLIDY [Suspect]
     Active Substance: TENOFOVIR ALAFENAMIDE FUMARATE
     Indication: PRODUCT USED FOR UNKNOWN INDICATION
     Dosage: 1 DOSAGE FORM, QD
     Route: 065

REACTIONS (4)
  - Memory impairment [Not Recovered/Not Resolved]
  - Anxiety [Not Recovered/Not Resolved]
  - Extra dose administered [Not Recovered/Not Resolved]
  - Intentional dose omission [Not Recovered/Not Resolved]
